FAERS Safety Report 15903010 (Version 2)
Quarter: 2019Q1

REPORT INFORMATION
  Report Type: Spontaneous
  Country: DE (occurrence: DE)
  Receive Date: 20190202
  Receipt Date: 20190222
  Transmission Date: 20190417
  Serious: Yes (Life-Threatening, Hospitalization, Other)
  Sender: FDA-Public Use
  Company Number: DE-B.I. PHARMACEUTICALS,INC./RIDGEFIELD-2019-BI-004786

PATIENT
  Age: 60 Year
  Sex: Male
  Weight: 114 kg

DRUGS (3)
  1. METFORMIN [Concomitant]
     Active Substance: METFORMIN HYDROCHLORIDE
     Indication: PRODUCT USED FOR UNKNOWN INDICATION
     Route: 048
  2. JARDIANCE [Suspect]
     Active Substance: EMPAGLIFLOZIN
     Indication: TYPE 2 DIABETES MELLITUS
     Route: 048
     Dates: start: 20180425, end: 20190122
  3. INSULIN [Concomitant]
     Active Substance: INSULIN NOS
     Indication: PRODUCT USED FOR UNKNOWN INDICATION
     Dosage: 50-60 IU/DAY
     Route: 058

REACTIONS (9)
  - Anal abscess [Unknown]
  - Fournier^s gangrene [Recovered/Resolved]
  - Anal fistula [Unknown]
  - Perirectal abscess [Unknown]
  - Escherichia infection [Unknown]
  - Testicular pain [Unknown]
  - Enterobacter infection [Unknown]
  - Chest pain [Unknown]
  - Genital discolouration [Unknown]

NARRATIVE: CASE EVENT DATE: 20180912
